FAERS Safety Report 9379941 (Version 1)
Quarter: 2013Q3

REPORT INFORMATION
  Report Type: Report from Study
  Country: CA (occurrence: CA)
  Receive Date: 20130702
  Receipt Date: 20130702
  Transmission Date: 20140515
  Serious: Yes (Other)
  Sender: FDA-Public Use
  Company Number: CA-JNJFOC-20130619713

PATIENT
  Age: 43 Year
  Sex: Female
  Weight: 111 kg

DRUGS (10)
  1. REMICADE [Suspect]
     Indication: CROHN^S DISEASE
     Route: 042
     Dates: start: 2007
  2. NOVO RAPID [Concomitant]
     Dosage: 54 UNITS
     Route: 065
  3. PANTOPRAZOLE [Concomitant]
     Route: 065
  4. AMLODIPINE [Concomitant]
     Route: 065
  5. BISOPROLOL [Concomitant]
     Route: 065
  6. ATACAND PLUS [Concomitant]
     Dosage: 32 MG / 25 MG
     Route: 065
  7. LEVEMIR [Concomitant]
     Dosage: 98 UNITS
     Route: 065
  8. CORTISONE [Concomitant]
     Route: 065
  9. METHOTREXATE [Concomitant]
     Route: 048
  10. FOLIC ACID [Concomitant]
     Route: 048

REACTIONS (2)
  - Pyoderma gangrenosum [Unknown]
  - Cyst [Recovering/Resolving]
